FAERS Safety Report 23344121 (Version 1)
Quarter: 2023Q4

REPORT INFORMATION
  Report Type: Report from Study
  Country: US (occurrence: US)
  Receive Date: 20231227
  Receipt Date: 20231227
  Transmission Date: 20240110
  Serious: Yes (Other)
  Sender: FDA-Public Use
  Company Number: US-ABBVIE-5554777

PATIENT
  Sex: Female

DRUGS (1)
  1. SKYRIZI [Suspect]
     Active Substance: RISANKIZUMAB-RZAA
     Indication: Crohn^s disease
     Route: 058

REACTIONS (4)
  - Foot operation [Recovering/Resolving]
  - Crohn^s disease [Recovering/Resolving]
  - Rectal discharge [Unknown]
  - Constipation [Unknown]

NARRATIVE: CASE EVENT DATE: 20230101
